FAERS Safety Report 5296372-9 (Version None)
Quarter: 2007Q2

REPORT INFORMATION
  Report Type: 
  Country: None (occurrence: None)
  Receive Date: 20070413
  Receipt Date: 20070403
  Transmission Date: 20071010
  Serious: Yes (Hospitalization)
  Sender: FDA-Public Use
  Company Number: FR-ROCHE-486409

PATIENT
  Age: 7 Month
  Sex: Female
  Weight: 10 kg

DRUGS (4)
  1. ROCEPHIN [Suspect]
     Indication: PYELONEPHRITIS
     Dosage: FORM REPORTED AS INJECTABLE SOLUTION.
     Route: 030
     Dates: start: 20070224
  2. ROCEPHIN [Suspect]
     Route: 042
  3. LIDOCAINE [Interacting]
     Indication: DRUG USE FOR UNKNOWN INDICATION
     Route: 065
  4. NEBCIN [Concomitant]

REACTIONS (2)
  - CONVULSION [None]
  - DRUG INTERACTION [None]
